FAERS Safety Report 17521544 (Version 1)
Quarter: 2020Q1

REPORT INFORMATION
  Report Type: Spontaneous
  Country: ZA (occurrence: ZA)
  Receive Date: 20200310
  Receipt Date: 20200310
  Transmission Date: 20200409
  Serious: Yes (Other)
  Sender: FDA-Public Use
  Company Number: ZA-PFIZER INC-2020103363

PATIENT
  Age: 50 Year
  Sex: Male

DRUGS (10)
  1. LYRICA [Concomitant]
     Active Substance: PREGABALIN
     Dosage: 75-150 MG, DAILY PRN
  2. CORTISONE [Concomitant]
     Active Substance: CORTISONE
     Dosage: UNK
     Route: 042
     Dates: start: 20181031
  3. FOLIC ACID. [Concomitant]
     Active Substance: FOLIC ACID
     Dosage: 5 MG, DAILY
  4. ARCOXIA [Concomitant]
     Active Substance: ETORICOXIB
     Dosage: 90 MG, ALTERNATE DAY
  5. PREDNISONE. [Concomitant]
     Active Substance: PREDNISONE
     Dosage: 10 MG, 4X PER WEEK
  6. TRAMACET [Concomitant]
     Active Substance: ACETAMINOPHEN\TRAMADOL
     Indication: PAIN
     Dosage: I/8 HOURLY PRN
  7. SALAZOPYRIN EN [Suspect]
     Active Substance: SULFASALAZINE
     Dosage: 1 G, 2X/DAY
     Dates: start: 2016
  8. NIVAQUINE [CHLOROQUINE] [Suspect]
     Active Substance: CHLOROQUINE
     Dosage: 200 MG, DAILY
     Dates: start: 2016
  9. ARAVA [Suspect]
     Active Substance: LEFLUNOMIDE
     Dosage: 10 MG, WEEKLY
     Dates: start: 20181031
  10. DORMONOCT [Concomitant]
     Active Substance: LOPRAZOLAM
     Indication: INSOMNIA
     Dosage: I/ NOCTE PRN

REACTIONS (3)
  - Seronegative arthritis [Unknown]
  - Osteoarthritis [Unknown]
  - Diverticulum [Unknown]

NARRATIVE: CASE EVENT DATE: 20160214
